FAERS Safety Report 7717883-X (Version None)
Quarter: 2011Q3

REPORT INFORMATION
  Report Type: 
  Country: None (occurrence: None)
  Receive Date: 20110830
  Receipt Date: 20110822
  Transmission Date: 20111222
  Serious: Yes (Other)
  Sender: FDA-Public Use
  Company Number: CA-NAPPMUNDI-GBR-2011-0008722

PATIENT
  Age: 71 Year
  Sex: Male

DRUGS (18)
  1. MORPHINE SULFATE [Suspect]
     Dosage: 105 MG (60 MG AM + 45 MG PM), DAILY
     Route: 048
  2. ALPHA LIPOIC ACID [Concomitant]
     Indication: PROPHYLAXIS
     Dosage: 150 MG, TID
     Route: 048
  3. MORPHINE SULFATE [Suspect]
     Dosage: 60 MG, BID
     Route: 048
     Dates: start: 20100501, end: 20100601
  4. INDOMETHACIN [Concomitant]
     Dosage: 50 MG, TID, PRN
     Dates: start: 20100201, end: 20100601
  5. MORPHINE SULFATE [Suspect]
     Dosage: 30 MG, DAILY
     Route: 048
     Dates: start: 20100701
  6. MORPHINE SULFATE [Suspect]
     Dosage: UNK
  7. GABAPENTIN [Concomitant]
     Indication: PAIN
     Dosage: 900 MG, TID
     Route: 048
     Dates: end: 20100201
  8. MORPHINE SULFATE [Suspect]
     Dosage: 10 MG, PRN
     Route: 048
     Dates: end: 20100201
  9. DICHLOROACETATE SODIUM [Concomitant]
     Indication: NEOPLASM MALIGNANT
     Dosage: 500 MG, TID
     Dates: start: 20100401
  10. ACETYLCARNITINE [Concomitant]
     Indication: PROPHYLAXIS
     Dosage: 500 MG, TID
     Route: 048
  11. MORPHINE SULFATE [Suspect]
     Dosage: 30 MG, BID
     Route: 048
     Dates: start: 20100601
  12. MORPHINE SULFATE [Suspect]
     Dosage: 60 MG, BID
     Route: 048
     Dates: start: 20091101, end: 20100201
  13. OXYCODONE HYDROCHLORIDE [Suspect]
     Indication: PAIN
     Dosage: 5 MG, PRN
     Route: 048
  14. MORPHINE SULFATE [Suspect]
     Dosage: 100 MG, BID
     Route: 048
     Dates: start: 20100201, end: 20100501
  15. BENFOTIAMINE [Concomitant]
     Indication: PROPHYLAXIS
     Dosage: 80 MG, BID
     Route: 048
  16. MORPHINE SULFATE [Suspect]
     Indication: CANCER PAIN
     Dosage: 10 MG, DAILY
     Route: 048
     Dates: start: 20100801, end: 20100901
  17. MORPHINE SULFATE [Suspect]
     Indication: BREAKTHROUGH PAIN
     Dosage: 25-50 MG, DAILY, PRN
     Route: 048
     Dates: start: 20100201, end: 20100601
  18. MEGESTROL ACETATE [Concomitant]
     Indication: INCREASED APPETITE
     Dosage: 160 MG, TID
     Route: 048
     Dates: end: 20100701

REACTIONS (8)
  - RESTLESSNESS [None]
  - CONSTIPATION [None]
  - WEIGHT DECREASED [None]
  - PAIN IN EXTREMITY [None]
  - OVERDOSE [None]
  - MYOCLONUS [None]
  - SEDATION [None]
  - ASTHENIA [None]
